FAERS Safety Report 8513197-9 (Version None)
Quarter: 2012Q3

REPORT INFORMATION
  Report Type: 
  Country: None (occurrence: None)
  Receive Date: 20120716
  Receipt Date: 20120713
  Transmission Date: 20120928
  Serious: Yes (Death, Hospitalization)
  Sender: FDA-Public Use
  Company Number: US-B.I. PHARMACEUTICALS,INC./RIDGEFIELD-2012-BP-04828BP

PATIENT
  Sex: Female

DRUGS (15)
  1. POTASSIUM CHLORIDE [Concomitant]
     Dosage: 10 MEQ
     Route: 048
  2. NEURONTIN [Concomitant]
     Dosage: 1200 MG
     Route: 048
  3. VITAMIN B-12 [Concomitant]
     Route: 048
  4. PRADAXA [Suspect]
     Indication: ATRIAL FIBRILLATION
     Dosage: 300 MG
     Route: 048
     Dates: end: 20120131
  5. DILTIAZEM [Concomitant]
     Dosage: 180 MG
     Route: 048
  6. EFFEXOR [Concomitant]
     Dosage: 150 MG
     Route: 048
  7. PRAVASTATIN [Concomitant]
     Dosage: 20 MG
     Route: 048
  8. MUCINEX [Concomitant]
     Dosage: 1200 MG
     Route: 048
  9. LISINOPRIL [Concomitant]
     Dosage: 2.5 MG
     Route: 048
  10. XOPENEX [Concomitant]
     Route: 055
  11. NEXIUM [Concomitant]
     Dosage: 40 MG
     Route: 048
  12. MAGNESIUM OXIDE [Concomitant]
     Dosage: 400 MG
     Route: 048
  13. LASIX [Concomitant]
     Dosage: 20 MG
     Route: 048
  14. FLOVENT HFA [Concomitant]
     Route: 055
  15. DIGOXIN [Concomitant]
     Route: 048

REACTIONS (18)
  - GASTRIC HAEMORRHAGE [None]
  - ASCITES [None]
  - MULTI-ORGAN FAILURE [None]
  - SHOCK HAEMORRHAGIC [None]
  - HAEMOGLOBIN DECREASED [None]
  - RESPIRATORY FAILURE [None]
  - HAEMATURIA [None]
  - RETROPERITONEAL HAEMATOMA [None]
  - ABDOMINAL COMPARTMENT SYNDROME [None]
  - SEPSIS SYNDROME [None]
  - DECREASED APPETITE [None]
  - INTESTINAL INFARCTION [None]
  - DIVERTICULUM [None]
  - SEPTIC SHOCK [None]
  - GASTROINTESTINAL NECROSIS [None]
  - ABDOMINAL PAIN [None]
  - DYSPNOEA [None]
  - NAUSEA [None]
